FAERS Safety Report 25416799 (Version 1)
Quarter: 2025Q2

REPORT INFORMATION
  Report Type: Spontaneous
  Country: US (occurrence: US)
  Receive Date: 20250610
  Receipt Date: 20250610
  Transmission Date: 20250717
  Serious: No
  Sender: ELI LILLY AND COMPANY
  Company Number: US-ELI_LILLY_AND_COMPANY-US202506007759

PATIENT
  Age: 60 Year

DRUGS (3)
  1. HUMULIN N [Suspect]
     Active Substance: INSULIN HUMAN
     Indication: Type 2 diabetes mellitus
     Route: 058
     Dates: start: 2024
  2. HUMULIN N [Suspect]
     Active Substance: INSULIN HUMAN
     Route: 058
     Dates: start: 2024
  3. HUMULIN N [Suspect]
     Active Substance: INSULIN HUMAN
     Route: 058
     Dates: start: 2024

REACTIONS (4)
  - Influenza [Not Recovered/Not Resolved]
  - Asthma [Not Recovered/Not Resolved]
  - Cough [Not Recovered/Not Resolved]
  - Accidental underdose [Unknown]

NARRATIVE: CASE EVENT DATE: 20250201
